FAERS Safety Report 16968602 (Version 2)
Quarter: 2020Q1

REPORT INFORMATION
  Report Type: Report from Study
  Country: FR (occurrence: FR)
  Receive Date: 20191029
  Receipt Date: 20200229
  Transmission Date: 20200409
  Serious: Yes (Hospitalization, Other)
  Sender: FDA-Public Use
  Company Number: FR-ROCHE-2451344

PATIENT
  Age: 56 Year
  Sex: Female

DRUGS (4)
  1. CARBOPLATIN. [Suspect]
     Active Substance: CARBOPLATIN
     Indication: OVARIAN CANCER
     Route: 042
     Dates: start: 20190109, end: 20190529
  2. BEVACIZUMAB. [Suspect]
     Active Substance: BEVACIZUMAB
     Indication: OVARIAN CANCER
     Dosage: ON 10-OCT-2019, SHE RECEIVED LAST DOSE OF BEVACIZUMAB (1000 MILLIGRAMS PER KILOGRAM) BEFORE THE EVEN
     Route: 042
     Dates: start: 20190109, end: 20191010
  3. PEGYLATED LIPOSOMAL DOXORUBICIN [Suspect]
     Active Substance: DOXORUBICIN
     Indication: OVARIAN CANCER
     Route: 042
     Dates: start: 20190109, end: 20190529
  4. ATEZOLIZUMAB. [Suspect]
     Active Substance: ATEZOLIZUMAB
     Indication: OVARIAN CANCER
     Dosage: ON 19/SEP/2019, SHE RECEIVED DOSE OF ATEZOLIZUMAB (800 MILLIGRAM) BEFORE THE EVENT.?ON 12/DEC/2019,S
     Route: 042
     Dates: start: 20190109

REACTIONS (3)
  - Viral infection [Recovered/Resolved]
  - Cough [Recovered/Resolved]
  - Dysphonia [Recovered/Resolved]

NARRATIVE: CASE EVENT DATE: 20191010
